FAERS Safety Report 8337691-9 (Version None)
Quarter: 2012Q2

REPORT INFORMATION
  Report Type: 
  Country: None (occurrence: None)
  Receive Date: 20120504
  Receipt Date: 20120425
  Transmission Date: 20120825
  Serious: Yes (Other)
  Sender: FDA-Public Use
  Company Number: CA-JNJFOC-20120413004

PATIENT
  Sex: Female

DRUGS (1)
  1. REMICADE [Suspect]
     Indication: CROHN'S DISEASE
     Route: 042
     Dates: end: 20120301

REACTIONS (5)
  - SCAB [None]
  - SYSTEMIC LUPUS ERYTHEMATOSUS [None]
  - ALOPECIA [None]
  - ARTHRITIS [None]
  - SKIN PLAQUE [None]
